FAERS Safety Report 20170965 (Version 1)
Quarter: 2021Q4

REPORT INFORMATION
  Report Type: Spontaneous
  Country: US (occurrence: US)
  Receive Date: 20211210
  Receipt Date: 20211210
  Transmission Date: 20220303
  Serious: Yes (Other)
  Sender: FDA-Public Use
  Company Number: US-BAYER-2021A260136

PATIENT
  Age: 60 Year
  Sex: Female

DRUGS (1)
  1. SORAFENIB [Suspect]
     Active Substance: SORAFENIB
     Indication: Hepatocellular carcinoma
     Dosage: UNK

REACTIONS (15)
  - Ascites [None]
  - Hepatomegaly [None]
  - Hepatic neoplasm [None]
  - Hepatic cirrhosis [None]
  - Haemoperitoneum [None]
  - Haemorrhage [None]
  - Anaemia [None]
  - Obstruction gastric [None]
  - Peritonitis [None]
  - Treatment failure [None]
  - Nausea [None]
  - Vomiting [None]
  - Decreased appetite [None]
  - Abdominal discomfort [None]
  - Vomiting [None]
